FAERS Safety Report 22323990 (Version 2)
Quarter: 2023Q2

REPORT INFORMATION
  Report Type: Other
  Country: US (occurrence: None)
  Receive Date: 20230516
  Receipt Date: 20230517
  Transmission Date: 20230721
  Serious: No
  Sender: FDA-Public Use
  Company Number: US-ROCHE-3205534

PATIENT
  Age: 53 Year
  Sex: Male

DRUGS (3)
  1. OCREVUS [Suspect]
     Active Substance: OCRELIZUMAB
     Indication: Primary progressive multiple sclerosis
     Dosage: ON DAY 1 AND DAY 14 THEN 600 MG EVERY 6 MONTHS, DATE OF SERVICE: 19/MAY/2022, 18/NOV/2021
     Route: 042
  2. OCREVUS [Suspect]
     Active Substance: OCRELIZUMAB
     Dosage: DATE OF TREATMENT:19/MAY/2022,18/NOV/2021,20/MAY/2021,29/OCT/2020,12/NOV/2020
     Route: 042
  3. AVONEX [Concomitant]
     Active Substance: INTERFERON BETA-1A

REACTIONS (3)
  - Cognitive disorder [Unknown]
  - Headache [Unknown]
  - COVID-19 [Unknown]
